FAERS Safety Report 8826216 (Version 2)
Quarter: 2012Q4

REPORT INFORMATION
  Report Type: 
  Country: US (occurrence: US)
  Receive Date: 20121005
  Receipt Date: 20121019
  Transmission Date: 20130627
  Serious: Yes (Hospitalization, Other)
  Sender: FDA-Public Use
  Company Number: US-NOVOPROD-361101

PATIENT
  Age: 17 Year
  Sex: Male
  Weight: 51.7 kg

DRUGS (1)
  1. NORDITROPIN NORDIFLEX [Suspect]
     Indication: GROWTH HORMONE DEFICIENCY
     Dosage: 5 mg, qd
     Route: 058
     Dates: start: 2009

REACTIONS (5)
  - Appendicitis perforated [Recovering/Resolving]
  - Intestinal obstruction [Recovering/Resolving]
  - Abdominal abscess [Not Recovered/Not Resolved]
  - Weight decreased [Not Recovered/Not Resolved]
  - Anaemia [Not Recovered/Not Resolved]
